FAERS Safety Report 8581177-3 (Version None)
Quarter: 2012Q3

REPORT INFORMATION
  Report Type: 
  Country: None (occurrence: None)
  Receive Date: 20120809
  Receipt Date: 20120801
  Transmission Date: 20120928
  Serious: Yes (Hospitalization, Other)
  Sender: FDA-Public Use
  Company Number: US-BAYER-2011-014820

PATIENT
  Age: 17 Year
  Sex: Female
  Weight: 73 kg

DRUGS (6)
  1. NSAID'S [Concomitant]
     Dosage: UNK UNK, PRN
  2. PEPCID [Concomitant]
     Dosage: 20 MG, UNK
     Route: 048
  3. YAZ [Suspect]
     Indication: PRODUCT USED FOR UNKNOWN INDICATION
     Dosage: UNK
     Dates: start: 20080101, end: 20090201
  4. OMEPRAZOLE [Concomitant]
     Route: 048
  5. TYLENOL [Concomitant]
     Route: 048
  6. LEXAPRO [Concomitant]
     Route: 048

REACTIONS (4)
  - CHOLECYSTITIS CHRONIC [None]
  - PANCREATITIS [None]
  - PAIN [None]
  - GALLBLADDER INJURY [None]
